FAERS Safety Report 5070369-6 (Version None)
Quarter: 2006Q3

REPORT INFORMATION
  Report Type: 
  Country: None (occurrence: None)
  Receive Date: 20060731
  Receipt Date: 20060724
  Transmission Date: 20061208
  Serious: Yes (Hospitalization, Other)
  Sender: FDA-Public Use
  Company Number: 2006080202

PATIENT
  Age: 34 Year
  Sex: Male
  Weight: 55 kg

DRUGS (9)
  1. ATARAX [Suspect]
     Indication: PREOPERATIVE CARE
     Dosage: 50 MG (ONCE), INTRAMUSCULAR
     Route: 030
     Dates: start: 20060619, end: 20060619
  2. PURSENNID (SENNA LEAF) [Concomitant]
  3. MAGCOROL (MAGNESIUM CITRATE) [Concomitant]
  4. LAXOBERON (SODIUM (PICOSULFATE) [Concomitant]
  5. GLYCERIN (GLYCERIN) [Concomitant]
  6. CEFAZOLIN SODIUM [Concomitant]
  7. SEVOFLURANE [Concomitant]
  8. MUSCULAX (VENCURONIUM BROMIDE) [Concomitant]
  9. DIPRIVAN [Concomitant]

REACTIONS (4)
  - EPIDERMAL NECROSIS [None]
  - INJECTION SITE ERYTHEMA [None]
  - INJECTION SITE SWELLING [None]
  - INJECTION SITE ULCER [None]
